FAERS Safety Report 5449857-6 (Version None)
Quarter: 2007Q3

REPORT INFORMATION
  Report Type: 
  Country: None (occurrence: None)
  Receive Date: 20070907
  Receipt Date: 20070907
  Transmission Date: 20080115
  Serious: Yes (Other)
  Sender: FDA-Public Use
  Company Number: None

PATIENT
  Age: 31 Year
  Sex: Female
  Weight: 79.3795 kg

DRUGS (5)
  1. CYMBALTA [Suspect]
     Indication: FIBROMYALGIA
     Dosage: 20 MG ONCE/DAY PO  40 MG ONCE/DAY PO
     Route: 048
     Dates: start: 20070801, end: 20070812
  2. CYMBALTA [Suspect]
     Indication: FIBROMYALGIA
     Dosage: 20 MG ONCE/DAY PO  40 MG ONCE/DAY PO
     Route: 048
     Dates: start: 20070813, end: 20070827
  3. TRAMADOL HCL [Concomitant]
  4. ZYRTEC [Concomitant]
  5. CLONAZEPAM [Concomitant]

REACTIONS (50)
  - ABDOMINAL PAIN [None]
  - ANXIETY [None]
  - ARTHRALGIA [None]
  - BACK PAIN [None]
  - CHILLS [None]
  - CONDITION AGGRAVATED [None]
  - DEPRESSED LEVEL OF CONSCIOUSNESS [None]
  - DEPRESSED MOOD [None]
  - DIARRHOEA [None]
  - DISTURBANCE IN ATTENTION [None]
  - DYSPEPSIA [None]
  - EYE DISORDER [None]
  - FATIGUE [None]
  - FEELING ABNORMAL [None]
  - FEELING COLD [None]
  - GINGIVAL BLEEDING [None]
  - GINGIVAL PAIN [None]
  - GRIP STRENGTH DECREASED [None]
  - HALLUCINATION, VISUAL [None]
  - HEADACHE [None]
  - HYPERACUSIS [None]
  - HYPERHIDROSIS [None]
  - HYPERSOMNIA [None]
  - HYPOAESTHESIA [None]
  - ILL-DEFINED DISORDER [None]
  - INSOMNIA [None]
  - IRRITABILITY [None]
  - JAW DISORDER [None]
  - LISTLESS [None]
  - MEMORY IMPAIRMENT [None]
  - MIGRAINE [None]
  - MOOD ALTERED [None]
  - MUSCLE SPASMS [None]
  - MUSCULOSKELETAL CHEST PAIN [None]
  - MUSCULOSKELETAL STIFFNESS [None]
  - NIGHT SWEATS [None]
  - NIGHTMARE [None]
  - NOCTURIA [None]
  - OILY SKIN [None]
  - ONYCHALGIA [None]
  - PAIN IN EXTREMITY [None]
  - PARAESTHESIA [None]
  - PAROSMIA [None]
  - PHOTOPHOBIA [None]
  - POOR QUALITY SLEEP [None]
  - RESTLESSNESS [None]
  - RHINORRHOEA [None]
  - SENSORY DISTURBANCE [None]
  - SOMNOLENCE [None]
  - TOOTHACHE [None]
